FAERS Safety Report 22985896 (Version 9)
Quarter: 2024Q3

REPORT INFORMATION
  Report Type: Report from Study
  Country: AR (occurrence: AR)
  Receive Date: 20230926
  Receipt Date: 20240923
  Transmission Date: 20241016
  Serious: Yes (Hospitalization, Other)
  Sender: NOVARTIS
  Company Number: AR-002147023-NVSC2023AR205163

PATIENT
  Age: 35 Year
  Sex: Female

DRUGS (6)
  1. ILARIS [Suspect]
     Active Substance: CANAKINUMAB
     Indication: Hypergammaglobulinaemia
     Dosage: 150 MG, QMO
     Route: 058
     Dates: start: 20201009
  2. ILARIS [Suspect]
     Active Substance: CANAKINUMAB
     Indication: Mevalonate kinase deficiency
     Dosage: 150 MG, Q4W, EVERY 4 WEEKS (APPLIED IT IN ABDOMEN)
     Route: 065
     Dates: start: 202010
  3. ILARIS [Suspect]
     Active Substance: CANAKINUMAB
     Dosage: 150 MG, Q4W, EVERY 4 WEEKS (20 JUL YEAR NOT REPORTED)
     Route: 065
  4. ILARIS [Suspect]
     Active Substance: CANAKINUMAB
     Dosage: 150 MG, Q4W, EVERY 4 WEEKS (20 JUL YEAR NOT REPORTED)
     Route: 065
  5. ILARIS [Suspect]
     Active Substance: CANAKINUMAB
     Dosage: 1 INJECTION Q4W
     Route: 065
     Dates: start: 20240826
  6. COLCHICINE [Concomitant]
     Active Substance: COLCHICINE
     Indication: Product used for unknown indication
     Dosage: 2 MG, QD
     Route: 065

REACTIONS (9)
  - Pneumonia [Unknown]
  - Chest pain [Unknown]
  - Immunosuppression [Unknown]
  - Fallopian tube obstruction [Unknown]
  - Infection [Unknown]
  - Influenza [Unknown]
  - Arthralgia [Unknown]
  - Fatigue [Unknown]
  - Product distribution issue [Unknown]

NARRATIVE: CASE EVENT DATE: 20230801
